FAERS Safety Report 19831640 (Version 2)
Quarter: 2021Q3

REPORT INFORMATION
  Report Type: Spontaneous
  Country: US (occurrence: US)
  Receive Date: 20210914
  Receipt Date: 20210916
  Transmission Date: 20211014
  Serious: No
  Sender: FDA-Public Use
  Company Number: US-VIVUS, INC.-2020V1000209

PATIENT
  Age: 50 Year
  Sex: Female
  Weight: 90.8 kg

DRUGS (1)
  1. QSYMIA [Suspect]
     Active Substance: PHENTERMINE HYDROCHLORIDE\TOPIRAMATE
     Indication: WEIGHT DECREASED
     Route: 048
     Dates: start: 20200824, end: 20200902

REACTIONS (4)
  - Vision blurred [Not Recovered/Not Resolved]
  - Feeling cold [Not Recovered/Not Resolved]
  - Muscle tightness [Not Recovered/Not Resolved]
  - Intentional dose omission [Recovered/Resolved]

NARRATIVE: CASE EVENT DATE: 20200901
